FAERS Safety Report 12894435 (Version 1)
Quarter: 2016Q4

REPORT INFORMATION
  Report Type: Spontaneous
  Country: TR (occurrence: TR)
  Receive Date: 20161028
  Receipt Date: 20161028
  Transmission Date: 20170207
  Serious: Yes (Other)
  Sender: FDA-Public Use
  Company Number: TR-LANNETT COMPANY, INC.-TR-2016LAN001712

PATIENT
  Age: 13 Year
  Sex: Female

DRUGS (3)
  1. METHYLPHENIDATE HYDROCHLORIDE. [Suspect]
     Active Substance: METHYLPHENIDATE HYDROCHLORIDE
     Indication: ATTENTION DEFICIT/HYPERACTIVITY DISORDER
     Dosage: IR: 20 MG, QD IN THE MORNING
  2. METHYLPHENIDATE HYDROCHLORIDE. [Suspect]
     Active Substance: METHYLPHENIDATE HYDROCHLORIDE
     Indication: ANXIETY
     Dosage: IR: 10 MG, QD IN THE MORNING DURING WEEKENDS
  3. METHYLPHENIDATE HYDROCHLORIDE. [Suspect]
     Active Substance: METHYLPHENIDATE HYDROCHLORIDE
     Indication: OBSESSIVE-COMPULSIVE DISORDER
     Dosage: OROS: 36 MG, QD IN THE MORNING DURING SCHOOL DAYS

REACTIONS (8)
  - Withdrawal syndrome [Unknown]
  - Decreased appetite [Unknown]
  - Myalgia [Recovered/Resolved]
  - Iron deficiency anaemia [Unknown]
  - Nausea [Recovered/Resolved]
  - Gait disturbance [Recovered/Resolved]
  - Headache [Recovered/Resolved]
  - Muscle spasms [Recovered/Resolved]
